FAERS Safety Report 10362513 (Version 3)
Quarter: 2014Q3

REPORT INFORMATION
  Report Type: Report from Study
  Country: US (occurrence: US)
  Receive Date: 20140805
  Receipt Date: 20140921
  Transmission Date: 20150326
  Serious: Yes (Other)
  Sender: FDA-Public Use
  Company Number: PHEH2014US015195

PATIENT
  Sex: Female
  Weight: 74.83 kg

DRUGS (12)
  1. WELLBUTRIN SR [Concomitant]
     Active Substance: BUPROPION HYDROCHLORIDE
     Indication: DEPRESSION
     Dosage: 150 MG, BID
     Route: 048
  2. MVI [Concomitant]
     Active Substance: VITAMINS
  3. BUSPAR [Concomitant]
     Active Substance: BUSPIRONE HYDROCHLORIDE
     Indication: DEPRESSION
     Dosage: 10 MG, TID
     Route: 048
  4. VITAMIN D3 [Concomitant]
     Active Substance: CHOLECALCIFEROL
     Indication: VITAMIN D DEFICIENCY
     Dosage: 2000 IU, UNK
  5. GILENYA [Suspect]
     Active Substance: FINGOLIMOD HYDROCHLORIDE
     Indication: MULTIPLE SCLEROSIS
     Dosage: 0.5 MG, QD
     Route: 048
     Dates: start: 20140507
  6. BUSPAR [Concomitant]
     Active Substance: BUSPIRONE HYDROCHLORIDE
     Dosage: 5 MG, QD
  7. IBUPROFEN. [Concomitant]
     Active Substance: IBUPROFEN
  8. MIRAPEX [Concomitant]
     Active Substance: PRAMIPEXOLE DIHYDROCHLORIDE
     Indication: RESTLESS LEGS SYNDROME
     Dosage: 0.25 MG, QHS
     Route: 048
  9. OCUVITE [Concomitant]
     Active Substance: VITAMINS
  10. CRANBERRY//VACCINIUM MACROCARPON [Concomitant]
     Active Substance: CRANBERRY
     Dosage: 300 MG, QD
     Route: 048
  11. KLONOPIN [Concomitant]
     Active Substance: CLONAZEPAM
     Dosage: 1 MG, QD
  12. FLOMAX [Concomitant]
     Active Substance: TAMSULOSIN HYDROCHLORIDE
     Indication: POLLAKIURIA
     Dosage: 0.4 MG, BID
     Route: 048

REACTIONS (4)
  - Vision blurred [Unknown]
  - Optic neuritis [Recovered/Resolved]
  - Concomitant disease aggravated [Not Recovered/Not Resolved]
  - Eye irritation [Not Recovered/Not Resolved]
